FAERS Safety Report 15594734 (Version 2)
Quarter: 2019Q2

REPORT INFORMATION
  Report Type: Spontaneous
  Country: US (occurrence: US)
  Receive Date: 20181106
  Receipt Date: 20190506
  Transmission Date: 20190711
  Serious: Yes (Other)
  Sender: FDA-Public Use
  Company Number: US-SA-2018SA302928

PATIENT
  Age: 54 Year
  Sex: Female
  Weight: 117.93 kg

DRUGS (6)
  1. TAXOTERE [Suspect]
     Active Substance: DOCETAXEL
     Indication: BREAST CANCER FEMALE
     Dosage: 158 MG, Q3W
     Route: 042
     Dates: start: 20130111, end: 20130111
  2. ELLENCE [Concomitant]
     Active Substance: EPIRUBICIN HYDROCHLORIDE
     Route: 065
  3. FLUOROURACIL. [Concomitant]
     Active Substance: FLUOROURACIL
  4. NEOSAR [Concomitant]
     Active Substance: CYCLOPHOSPHAMIDE
     Route: 065
  5. FEMARA [Concomitant]
     Active Substance: LETROZOLE
     Dosage: UNK
     Dates: start: 200407
  6. TAXOTERE [Suspect]
     Active Substance: DOCETAXEL
     Dosage: 158 MG, Q3W
     Route: 042
     Dates: start: 20130201, end: 20130201

REACTIONS (3)
  - Alopecia [Not Recovered/Not Resolved]
  - Emotional distress [Not Recovered/Not Resolved]
  - Anxiety [Unknown]

NARRATIVE: CASE EVENT DATE: 201403
